FAERS Safety Report 21893384 (Version 1)
Quarter: 2023Q1

REPORT INFORMATION
  Report Type: Spontaneous
  Country: US (occurrence: US)
  Receive Date: 20230121
  Receipt Date: 20230121
  Transmission Date: 20230417
  Serious: No
  Sender: FDA-Public Use
  Company Number: US-PCCINC-2021-PEL-000938

PATIENT

DRUGS (2)
  1. GABLOFEN [Suspect]
     Active Substance: BACLOFEN
     Indication: Muscle spasticity
     Dosage: 230.2 MICROGRAM/DAY
     Route: 037
  2. GABLOFEN [Suspect]
     Active Substance: BACLOFEN
     Indication: Paraparesis
     Dosage: 2000 MICROGRAM
     Route: 037
     Dates: start: 20211124

REACTIONS (4)
  - Cognitive disorder [Recovered/Resolved]
  - Malaise [Recovered/Resolved]
  - Overdose [Recovered/Resolved]
  - Product dispensing error [Recovered/Resolved]

NARRATIVE: CASE EVENT DATE: 20211124
